FAERS Safety Report 5525127-2 (Version None)
Quarter: 2007Q4

REPORT INFORMATION
  Report Type: 
  Country: None (occurrence: None)
  Receive Date: 20071119
  Receipt Date: 20071119
  Transmission Date: 20080405
  Serious: Yes (Life-Threatening, Hospitalization)
  Sender: FDA-Public Use
  Company Number: None

PATIENT
  Age: 42 Year
  Sex: Male

DRUGS (10)
  1. WARFARIN SODIUM [Suspect]
     Indication: DEEP VEIN THROMBOSIS
     Dosage: DAILY PO
     Route: 048
  2. LEVETIRACETAM [Concomitant]
  3. SENNA [Concomitant]
  4. TRAZODONE HCL [Concomitant]
  5. GABAPENTIN [Concomitant]
  6. LIDOERM PATCH [Concomitant]
  7. CLARITIN [Concomitant]
  8. HYDRALAZINE HCL [Concomitant]
  9. DUONEBS [Concomitant]
  10. LACTULOSE [Concomitant]

REACTIONS (2)
  - COAGULOPATHY [None]
  - EXTRADURAL HAEMATOMA [None]
